FAERS Safety Report 23736427 (Version 1)
Quarter: 2024Q2

REPORT INFORMATION
  Report Type: Report from Study
  Country: ID (occurrence: None)
  Receive Date: 20240412
  Receipt Date: 20240412
  Transmission Date: 20240715
  Serious: Yes (Death, Hospitalization)
  Sender: FDA-Public Use
  Company Number: 2020SE69744

PATIENT
  Sex: Female

DRUGS (4)
  1. FASLODEX [Suspect]
     Active Substance: FULVESTRANT
     Indication: Oestrogen receptor assay positive
     Dosage: 500.0MG UNKNOWN
     Route: 030
     Dates: start: 20190528
  2. FASLODEX [Suspect]
     Active Substance: FULVESTRANT
     Indication: Breast cancer metastatic
     Dosage: 500.0MG UNKNOWN
     Route: 030
     Dates: start: 20190528
  3. FASLODEX [Suspect]
     Active Substance: FULVESTRANT
     Indication: Ill-defined disorder
     Dosage: 500.0MG UNKNOWN
     Route: 030
     Dates: start: 20190528
  4. FASLODEX [Suspect]
     Active Substance: FULVESTRANT
     Indication: Disease progression
     Dosage: 500.0MG UNKNOWN
     Route: 030
     Dates: start: 20190528

REACTIONS (1)
  - Cardiac failure [Fatal]
